FAERS Safety Report 9283063 (Version 1)
Quarter: 2013Q2

REPORT INFORMATION
  Report Type: Spontaneous
  Country: US (occurrence: US)
  Receive Date: 20130510
  Receipt Date: 20130510
  Transmission Date: 20140414
  Serious: No
  Sender: FDA-Public Use
  Company Number: US-GLAXOSMITHKLINE-A0977770A

PATIENT
  Age: 67 Year
  Sex: Female
  Weight: 75.7 kg

DRUGS (13)
  1. TYKERB [Suspect]
     Indication: BREAST CANCER METASTATIC
     Route: 048
  2. AMLODIPINE [Concomitant]
  3. LORAZEPAM [Concomitant]
  4. BACTRIM [Concomitant]
  5. OSCAL [Concomitant]
  6. FOSAMAX [Concomitant]
  7. PROMETHAZINE [Concomitant]
  8. PRILOSEC [Concomitant]
  9. KLOR CON [Concomitant]
  10. XELODA [Concomitant]
  11. SANDOSTATIN [Concomitant]
  12. LIPITOR [Concomitant]
  13. ZOMETA [Concomitant]

REACTIONS (2)
  - Erythema [Unknown]
  - Burning sensation [Unknown]
